FAERS Safety Report 7964960-4 (Version None)
Quarter: 2011Q4

REPORT INFORMATION
  Report Type: 
  Country: None (occurrence: None)
  Receive Date: 20111208
  Receipt Date: 20111202
  Transmission Date: 20120403
  Serious: Yes (Hospitalization)
  Sender: FDA-Public Use
  Company Number: FI-ROCHE-1018850

PATIENT
  Age: 59 Year
  Sex: Female

DRUGS (4)
  1. OXALIPLATIN [Suspect]
     Indication: GASTROINTESTINAL CARCINOMA
     Route: 042
  2. AVASTIN [Suspect]
     Indication: GASTROINTESTINAL CARCINOMA
     Route: 042
  3. LEUCOVORIN CALCIUM [Concomitant]
     Indication: GASTROINTESTINAL CARCINOMA
  4. FLUOROURACIL [Suspect]
     Indication: GASTROINTESTINAL CARCINOMA
     Route: 042

REACTIONS (4)
  - PYREXIA [None]
  - VOMITING [None]
  - BLOOD GLUCOSE DECREASED [None]
  - DIARRHOEA [None]
